FAERS Safety Report 9307048 (Version 2)
Quarter: 2013Q4

REPORT INFORMATION
  Report Type: Spontaneous
  Country: US (occurrence: US)
  Receive Date: 20130523
  Receipt Date: 20131112
  Transmission Date: 20140711
  Serious: Yes (Hospitalization)
  Sender: FDA-Public Use
  Company Number: US-B.I. PHARMACEUTICALS,INC./RIDGEFIELD-2013-BI-14405BP

PATIENT
  Age: 59 Year
  Sex: Female
  Weight: 74.84 kg

DRUGS (15)
  1. PRADAXA [Suspect]
     Indication: ANTICOAGULANT THERAPY
     Dosage: 300 MG
     Route: 048
     Dates: start: 20120427, end: 20120725
  2. PRADAXA [Suspect]
     Indication: ATRIAL FIBRILLATION
  3. MORPHINE [Concomitant]
     Dosage: 180 MG
  4. SOMA [Concomitant]
     Dosage: 1400 MG
  5. PERCOCET [Concomitant]
  6. ZOLOFT [Concomitant]
  7. XANAX [Concomitant]
  8. SINGULAIR [Concomitant]
     Dosage: 10 MG
  9. FOLATE [Concomitant]
  10. ADVAIR [Concomitant]
  11. SPIRIVA [Concomitant]
  12. PROAIR [Concomitant]
  13. XOPENEX [Concomitant]
  14. SYNTHROID [Concomitant]
     Dosage: 50 MCG
  15. BYSTOLIC [Concomitant]
     Dosage: 20 MG

REACTIONS (2)
  - Subarachnoid haemorrhage [Unknown]
  - Epistaxis [Unknown]
